FAERS Safety Report 25993284 (Version 2)
Quarter: 2025Q4

REPORT INFORMATION
  Report Type: Report from Study
  Country: CA (occurrence: CA)
  Receive Date: 20251104
  Receipt Date: 20251125
  Transmission Date: 20260117
  Serious: Yes (Hospitalization, Other)
  Sender: ABBVIE
  Company Number: CA-ABBVIE-6520773

PATIENT
  Age: 63 Year
  Sex: Female

DRUGS (3)
  1. RINVOQ [Suspect]
     Active Substance: UPADACITINIB
     Indication: Psoriasis
     Dosage: FORM STRENGTH: 15 MG
     Route: 048
     Dates: start: 20230502, end: 202408
  2. RINVOQ [Suspect]
     Active Substance: UPADACITINIB
     Indication: Psoriasis
     Dosage: FORM STRENGTH: 15 MG, THERAPY START DATE: 2024.
     Route: 048
     Dates: end: 20251105
  3. RINVOQ [Suspect]
     Active Substance: UPADACITINIB
     Indication: Psoriasis
     Dosage: FORM STRENGTH: 15 MG
     Route: 048
     Dates: start: 20251013

REACTIONS (7)
  - Pneumonia [Not Recovered/Not Resolved]
  - Post procedural inflammation [Unknown]
  - Lung neoplasm malignant [Unknown]
  - Nodule [Unknown]
  - Device dislocation [Unknown]
  - Cartilage atrophy [Unknown]
  - Knee arthroplasty [Unknown]

NARRATIVE: CASE EVENT DATE: 20240808
